FAERS Safety Report 6472234-6 (Version None)
Quarter: 2009Q4

REPORT INFORMATION
  Report Type: 
  Country: None (occurrence: None)
  Receive Date: 20091203
  Receipt Date: 20091125
  Transmission Date: 20100525
  Serious: Yes (Death)
  Sender: FDA-Public Use
  Company Number: US-GILEAD-2009-0025685

PATIENT
  Sex: Male
  Weight: 68.1 kg

DRUGS (16)
  1. LETAIRIS [Suspect]
     Indication: PULMONARY ARTERIAL HYPERTENSION
     Route: 048
     Dates: start: 20081101
  2. ETOPOSIDE [Concomitant]
  3. AVASTIN [Concomitant]
  4. FLORASTOR [Concomitant]
  5. OXYGEN [Concomitant]
  6. ADVAIR DISKUS 100/50 [Concomitant]
  7. SPIRIVA [Concomitant]
  8. DECADRON [Concomitant]
  9. RYTHMOL [Concomitant]
  10. LASIX [Concomitant]
  11. PROSCAR [Concomitant]
  12. SOTALOL HCL [Concomitant]
  13. DEPAKOTE [Concomitant]
  14. PROTONIX [Concomitant]
  15. FERROUS SULFATE TAB [Concomitant]
  16. VITAMIN B-12 [Concomitant]

REACTIONS (1)
  - BRAIN NEOPLASM [None]
